FAERS Safety Report 17220402 (Version 1)
Quarter: 2019Q4

REPORT INFORMATION
  Report Type: Spontaneous
  Country: US (occurrence: US)
  Receive Date: 20191231
  Receipt Date: 20191231
  Transmission Date: 20200122
  Serious: No
  Sender: FDA-Public Use
  Company Number: US-BAUSCH-BL-2019-065096

PATIENT
  Sex: Female

DRUGS (1)
  1. LUMIFY [Suspect]
     Active Substance: BRIMONIDINE TARTRATE
     Indication: PRODUCT USED FOR UNKNOWN INDICATION
     Dosage: STARTED FEW MONTHS AGO, SAMPLES
     Route: 047
     Dates: start: 2019, end: 2019

REACTIONS (3)
  - Product storage error [Unknown]
  - Eye irritation [Unknown]
  - Vision blurred [Unknown]

NARRATIVE: CASE EVENT DATE: 2019
